FAERS Safety Report 7507201-4 (Version None)
Quarter: 2011Q2

REPORT INFORMATION
  Report Type: 
  Country: None (occurrence: None)
  Receive Date: 20110526
  Receipt Date: 20110524
  Transmission Date: 20111010
  Serious: Yes (Other)
  Sender: FDA-Public Use
  Company Number: US-AMGEN-QUU432631

PATIENT
  Sex: Female
  Weight: 65.76 kg

DRUGS (1)
  1. NPLATE [Suspect]
     Indication: IDIOPATHIC THROMBOCYTOPENIC PURPURA
     Dosage: 60 A?G, UNK
     Dates: start: 20081013, end: 20100204

REACTIONS (10)
  - DIZZINESS [None]
  - ARTHRALGIA [None]
  - MYALGIA [None]
  - PLATELET COUNT DECREASED [None]
  - HEADACHE [None]
  - BIOPSY BONE MARROW ABNORMAL [None]
  - PAIN IN EXTREMITY [None]
  - MUSCULOSKELETAL PAIN [None]
  - RETICULIN INCREASED [None]
  - MUSCULAR WEAKNESS [None]
